FAERS Safety Report 5159433-0 (Version None)
Quarter: 2006Q4

REPORT INFORMATION
  Report Type: 
  Country: None (occurrence: None)
  Receive Date: 20061120
  Receipt Date: 20061120
  Transmission Date: 20070319
  Serious: Yes (Other)
  Sender: FDA-Public Use
  Company Number: None

PATIENT
  Age: 39 Year
  Sex: Female
  Weight: 110.2241 kg

DRUGS (2)
  1. ZOMETA [Suspect]
     Indication: BREAST CANCER
     Dosage: 4 MG MONTHLY IV   4 MG EVERY 6 WKS IV
     Route: 042
     Dates: start: 20040501, end: 20061101
  2. ZOMETA [Suspect]
     Indication: METASTASES TO BONE
     Dosage: 4 MG MONTHLY IV   4 MG EVERY 6 WKS IV
     Route: 042
     Dates: start: 20040501, end: 20061101

REACTIONS (1)
  - OSTEONECROSIS [None]
